FAERS Safety Report 5574516-9 (Version None)
Quarter: 2007Q4

REPORT INFORMATION
  Report Type: 
  Country: None (occurrence: None)
  Receive Date: 20071227
  Receipt Date: 20071214
  Transmission Date: 20080405
  Serious: Yes (Hospitalization)
  Sender: FDA-Public Use
  Company Number: GB-AMGEN-US257732

PATIENT
  Age: 55 Year
  Sex: Female

DRUGS (3)
  1. ENBREL [Suspect]
     Indication: DRUG USE FOR UNKNOWN INDICATION
     Dosage: UNKNOWN
     Route: 058
     Dates: start: 20050101
  2. NSAID'S [Suspect]
     Dosage: UNKNOWN
     Dates: end: 20071101
  3. METHOTREXATE [Suspect]
     Dosage: UNKNOWN
     Dates: end: 20071101

REACTIONS (1)
  - HEPATIC ENZYME INCREASED [None]
